FAERS Safety Report 17682322 (Version 1)
Quarter: 2020Q2

REPORT INFORMATION
  Report Type: Spontaneous
  Country: DE (occurrence: DE)
  Receive Date: 20200418
  Receipt Date: 20200418
  Transmission Date: 20200714
  Serious: Yes (Other)
  Sender: FDA-Public Use
  Company Number: NVSC2019DE086684

PATIENT
  Sex: Female
  Weight: 61 kg

DRUGS (1)
  1. CETIRIZIN HEXAL BEI ALLERGIEN [Suspect]
     Active Substance: CETIRIZINE HYDROCHLORIDE
     Indication: PRODUCT USED FOR UNKNOWN INDICATION
     Dosage: 1 DF, QD
     Route: 065
     Dates: start: 20191110, end: 20191115

REACTIONS (5)
  - Asthenia [Unknown]
  - Loss of consciousness [Unknown]
  - Diarrhoea [Unknown]
  - Amnesia [Unknown]
  - Depression [Unknown]

NARRATIVE: CASE EVENT DATE: 20191111
